FAERS Safety Report 9296514 (Version 1)
Quarter: 2013Q2

REPORT INFORMATION
  Report Type: Report from Study
  Country: US (occurrence: US)
  Receive Date: 20130517
  Receipt Date: 20130517
  Transmission Date: 20140414
  Serious: No
  Sender: FDA-Public Use
  Company Number: US-ASTRAZENECA-2013SE31342

PATIENT
  Age: 82 Year
  Sex: Male

DRUGS (5)
  1. SYMBICORT PMDI [Suspect]
     Indication: CHRONIC OBSTRUCTIVE PULMONARY DISEASE
     Route: 055
  2. SYMBICORT PMDI [Suspect]
     Indication: BRONCHITIS
     Route: 055
  3. ASPIRIN [Concomitant]
     Indication: CARDIAC DISORDER
  4. CARTHIA [Concomitant]
     Indication: CARDIAC DISORDER
  5. FLECAINDE [Concomitant]
     Indication: CARDIAC DISORDER

REACTIONS (2)
  - Dyspnoea [Unknown]
  - Drug dose omission [Unknown]
